FAERS Safety Report 10469749 (Version 2)
Quarter: 2014Q2

REPORT INFORMATION
  Report Type: Spontaneous
  Country: US (occurrence: None)
  Receive Date: 20140604
  Receipt Date: 20140604
  Transmission Date: 20141212
  Serious: Yes (Hospitalization)
  Sender: FDA-Public Use
  Company Number: 20090930CINRY1165

PATIENT
  Age: 60 Year
  Sex: Male

DRUGS (2)
  1. CINRYZE [Suspect]
     Indication: PROPHYLAXIS
     Dosage: 1000 UNIT, 2 IN 1 WK, INTRAVENOUS
     Route: 042
     Dates: start: 20090717, end: 20091014
  2. CINRYZE [Suspect]
     Indication: HEREDITARY ANGIOEDEMA
     Dosage: 1000 UNIT, 2 IN 1 WK, INTRAVENOUS
     Route: 042
     Dates: start: 20090717, end: 20091014

REACTIONS (7)
  - Fatigue [None]
  - Hyperhidrosis [None]
  - Swelling [None]
  - Drug ineffective [None]
  - Hereditary angioedema [None]
  - Dyspnoea [None]
  - Drug ineffective for unapproved indication [None]
